FAERS Safety Report 19229859 (Version 1)
Quarter: 2021Q2

REPORT INFORMATION
  Report Type: Spontaneous
  Country: JP (occurrence: JP)
  Receive Date: 20210506
  Receipt Date: 20210506
  Transmission Date: 20210717
  Serious: Yes (Death)
  Sender: FDA-Public Use
  Company Number: JP-ALLERGAN-2117370US

PATIENT
  Sex: Female

DRUGS (1)
  1. ASENAPINE MALEATE ? BP [Suspect]
     Active Substance: ASENAPINE MALEATE
     Indication: DEMENTIA ALZHEIMER^S TYPE
     Dosage: 2.5 MG, QD
     Route: 060

REACTIONS (2)
  - Off label use [Unknown]
  - Pneumonia aspiration [Fatal]
